FAERS Safety Report 5806814-5 (Version None)
Quarter: 2008Q3

REPORT INFORMATION
  Report Type: 
  Country: None (occurrence: None)
  Receive Date: 20080711
  Receipt Date: 20080702
  Transmission Date: 20090109
  Serious: Yes (Other)
  Sender: FDA-Public Use
  Company Number: JP-WYE-H04871008

PATIENT
  Age: 71 Year
  Sex: Female

DRUGS (4)
  1. HYPEN [Suspect]
     Route: 048
     Dates: start: 20080609, end: 20080611
  2. MAGNESIUM OXIDE [Concomitant]
     Dosage: UNKNOWN
     Route: 048
     Dates: start: 20080609, end: 20080611
  3. TERBINAFINE HCL [Concomitant]
     Dosage: UNKNOWN
     Route: 048
  4. GATIFLOXACIN [Suspect]
     Route: 048
     Dates: start: 20080609, end: 20080611

REACTIONS (5)
  - ALANINE AMINOTRANSFERASE INCREASED [None]
  - ASPARTATE AMINOTRANSFERASE INCREASED [None]
  - BLOOD ALKALINE PHOSPHATASE INCREASED [None]
  - GAMMA-GLUTAMYLTRANSFERASE INCREASED [None]
  - LIVER DISORDER [None]
